FAERS Safety Report 25392627 (Version 1)
Quarter: 2025Q2

REPORT INFORMATION
  Report Type: Spontaneous
  Country: JP (occurrence: JP)
  Receive Date: 20250603
  Receipt Date: 20250603
  Transmission Date: 20250717
  Serious: Yes (Hospitalization, Other)
  Sender: GENMAB
  Company Number: JP-GENMAB-2025-01515

PATIENT
  Age: 8 Decade

DRUGS (2)
  1. EPKINLY [Suspect]
     Active Substance: EPCORITAMAB-BYSP
     Indication: Diffuse large B-cell lymphoma
     Route: 065
     Dates: start: 20250421, end: 20250421
  2. EPKINLY [Suspect]
     Active Substance: EPCORITAMAB-BYSP
     Route: 065
     Dates: start: 2025, end: 20250512

REACTIONS (2)
  - Intestinal perforation [Recovering/Resolving]
  - Pyrexia [Recovered/Resolved]

NARRATIVE: CASE EVENT DATE: 20250101
